FAERS Safety Report 9153403 (Version 1)
Quarter: 2013Q1

REPORT INFORMATION
  Report Type: Spontaneous
  Country: DK (occurrence: None)
  Receive Date: 20130204
  Receipt Date: 20130204
  Transmission Date: 20140127
  Serious: Yes (Other)
  Sender: FDA-Public Use
  Company Number: 2013MA000802

PATIENT
  Age: 58 Year
  Sex: Male

DRUGS (5)
  1. RAMIPRIL [Suspect]
     Indication: HYPERTENSION
     Route: 048
     Dates: start: 201111, end: 201211
  2. METFORMIN [Concomitant]
  3. SIMVASTATIN [Concomitant]
  4. INSULIN ASPART [Concomitant]
  5. INSULIN DETEMIR [Concomitant]

REACTIONS (1)
  - Dysgeusia [None]
